FAERS Safety Report 6603914-7 (Version None)
Quarter: 2010Q1

REPORT INFORMATION
  Report Type: 
  Country: None (occurrence: None)
  Receive Date: 20100226
  Receipt Date: 20090316
  Transmission Date: 20100710
  Serious: No
  Sender: FDA-Public Use
  Company Number: A0773592A

PATIENT
  Age: 17 Year
  Sex: Female

DRUGS (5)
  1. LAMOTRIGINE [Suspect]
     Route: 048
     Dates: start: 20081101
  2. LAMICTAL CD [Suspect]
     Dosage: 150MG TWICE PER DAY
     Route: 048
     Dates: start: 20090101
  3. SINGULAIR [Concomitant]
  4. ZYRTEC [Concomitant]
  5. BACTRIM [Concomitant]

REACTIONS (2)
  - FALL [None]
  - TREMOR [None]
